FAERS Safety Report 14596380 (Version 3)
Quarter: 2018Q3

REPORT INFORMATION
  Report Type: Report from Study
  Country: DE (occurrence: DE)
  Receive Date: 20180303
  Receipt Date: 20180720
  Transmission Date: 20181010
  Serious: Yes (Other)
  Sender: FDA-Public Use
  Company Number: DE-AUROBINDO-AUR-APL-2018-011177

PATIENT
  Age: 28 Year
  Sex: Female

DRUGS (1)
  1. QUETIAPINE. [Suspect]
     Active Substance: QUETIAPINE
     Indication: PSYCHOTIC DISORDER
     Dosage: 600 MILLIGRAM, ONCE A DAY
     Route: 048

REACTIONS (4)
  - Maternal exposure during pregnancy [Unknown]
  - Live birth [Unknown]
  - Labour complication [Unknown]
  - Caesarean section [Unknown]
